FAERS Safety Report 10228826 (Version 2)
Quarter: 2014Q2

REPORT INFORMATION
  Report Type: Spontaneous
  Country: CA (occurrence: CA)
  Receive Date: 20140610
  Receipt Date: 20140626
  Transmission Date: 20141212
  Serious: Yes (Other)
  Sender: FDA-Public Use
  Company Number: CA-ABBVIE-14P-028-1245744-00

PATIENT
  Age: 52 Year
  Sex: Female
  Weight: 79.2 kg

DRUGS (5)
  1. BIAXIN (UNSPECIFIED) [Suspect]
     Indication: PNEUMONIA
     Route: 048
     Dates: start: 20140324, end: 20140331
  2. CHAMPIX [Suspect]
     Indication: EX-TOBACCO USER
     Dosage: STARTER PACK
     Route: 048
     Dates: start: 20140131
  3. CHAMPIX [Suspect]
     Route: 048
     Dates: start: 20140219, end: 20140324
  4. CHAMPIX [Suspect]
     Dates: start: 2014
  5. CEFUROXIME [Concomitant]
     Indication: PNEUMONIA
     Dates: start: 20140324, end: 20140331

REACTIONS (11)
  - Hunger [Not Recovered/Not Resolved]
  - Abdominal distension [Not Recovered/Not Resolved]
  - Weight increased [Unknown]
  - Dizziness [Not Recovered/Not Resolved]
  - Headache [None]
  - Flatulence [None]
  - Asthenia [None]
  - Asthenia [None]
  - Back pain [None]
  - Feeling of body temperature change [None]
  - Pneumonia [None]
